FAERS Safety Report 6054779-6 (Version None)
Quarter: 2009Q1

REPORT INFORMATION
  Report Type: 
  Country: None (occurrence: None)
  Receive Date: 20090128
  Receipt Date: 20090116
  Transmission Date: 20090719
  Serious: Yes (Hospitalization)
  Sender: FDA-Public Use
  Company Number: FR-PFIZER INC-2006048780

PATIENT

DRUGS (3)
  1. SUNITINIB MALATE [Suspect]
     Indication: RENAL CELL CARCINOMA
     Dosage: 50 MG, 1X/DAY
     Dates: start: 20060314, end: 20060330
  2. SOLUPRED [Concomitant]
     Route: 048
  3. LASILIX [Concomitant]
     Route: 048

REACTIONS (2)
  - ASTHENIA [None]
  - INTERSTITIAL LUNG DISEASE [None]
